FAERS Safety Report 7593093-4 (Version None)
Quarter: 2011Q3

REPORT INFORMATION
  Report Type: 
  Country: None (occurrence: None)
  Receive Date: 20110706
  Receipt Date: 20110703
  Transmission Date: 20111222
  Serious: Yes (Hospitalization)
  Sender: FDA-Public Use
  Company Number: IL-ROCHE-787000

PATIENT
  Age: 58 Year
  Sex: Female

DRUGS (4)
  1. HERCEPTIN [Suspect]
     Dosage: DOSE STARTED MORE THAN 5 YEARS AGO
     Route: 065
  2. TAMOXIFEN CITRATE [Suspect]
     Route: 065
  3. NAVELBINE [Suspect]
     Route: 065
  4. AROMASIN [Suspect]
     Route: 065

REACTIONS (1)
  - CEREBROVASCULAR ACCIDENT [None]
